FAERS Safety Report 23231282 (Version 3)
Quarter: 2024Q1

REPORT INFORMATION
  Report Type: Spontaneous
  Country: AU (occurrence: AU)
  Receive Date: 20231127
  Receipt Date: 20240216
  Transmission Date: 20240410
  Serious: Yes (Other)
  Sender: FDA-Public Use
  Company Number: AU-OTSUKA-2023_030343

PATIENT
  Age: 81 Year
  Sex: Male

DRUGS (3)
  1. INQOVI [Suspect]
     Active Substance: CEDAZURIDINE\DECITABINE
     Indication: Product used for unknown indication
     Dosage: 1 DF (35 MG DECITABINE AND 100 MG CEDAZURIDINE) QD ON DAYS 1-5 EVERY 28 DAYS (TWO CYCLES)
     Route: 048
     Dates: start: 202304, end: 202306
  2. AZACITIDINE [Suspect]
     Active Substance: AZACITIDINE
     Indication: Product used for unknown indication
     Dosage: UNK
     Route: 065
  3. AZACITIDINE [Suspect]
     Active Substance: AZACITIDINE
     Dosage: UNK (DAY ONE TO SEVEN, EVERY 28 DAYS)
     Route: 065
     Dates: start: 202306

REACTIONS (3)
  - Chronic myelomonocytic leukaemia [Unknown]
  - Pancytopenia [Unknown]
  - Biopsy bone marrow [Unknown]

NARRATIVE: CASE EVENT DATE: 20230601
